FAERS Safety Report 8001136-9 (Version None)
Quarter: 2011Q4

REPORT INFORMATION
  Report Type: 
  Country: None (occurrence: None)
  Receive Date: 20111219
  Receipt Date: 20111205
  Transmission Date: 20120403
  Serious: Yes (Life-Threatening, Hospitalization)
  Sender: FDA-Public Use
  Company Number: 2011MA017409

PATIENT
  Sex: Male
  Weight: 49.4421 kg

DRUGS (7)
  1. CARDIZEM [Concomitant]
  2. LIPITOR [Concomitant]
  3. PLAVIX [Concomitant]
  4. DIGOXIN [Suspect]
     Indication: PRODUCT USED FOR UNKNOWN INDICATION
     Dosage: 0.25 MG;QD;PO
     Route: 048
     Dates: start: 20070919
  5. ASPIRIN [Concomitant]
  6. DIOVAN [Concomitant]
  7. HYDROCHLOROTHIAZIDE [Concomitant]

REACTIONS (36)
  - HYPERTENSION [None]
  - BUNDLE BRANCH BLOCK LEFT [None]
  - CORONARY ARTERY DISEASE [None]
  - IN-STENT CORONARY ARTERY RESTENOSIS [None]
  - CORONARY ARTERY STENOSIS [None]
  - HYPERKERATOSIS [None]
  - BIFASCICULAR BLOCK [None]
  - CAROTID ARTERY STENOSIS [None]
  - PROSTATOMEGALY [None]
  - SYNCOPE [None]
  - SINUS BRADYCARDIA [None]
  - COUGH [None]
  - HEART RATE INCREASED [None]
  - RHONCHI [None]
  - BUNDLE BRANCH BLOCK RIGHT [None]
  - TRICUSPID VALVE INCOMPETENCE [None]
  - DIZZINESS [None]
  - MYOCARDIAL INFARCTION [None]
  - ATRIAL FIBRILLATION [None]
  - PERIPHERAL PULSE DECREASED [None]
  - FALL [None]
  - CAROTID ARTERY OCCLUSION [None]
  - HYPONATRAEMIA [None]
  - HEADACHE [None]
  - TREATMENT NONCOMPLIANCE [None]
  - CORONARY ARTERY OCCLUSION [None]
  - CHEST PAIN [None]
  - VENTRICULAR HYPOKINESIA [None]
  - MITRAL VALVE INCOMPETENCE [None]
  - ARRHYTHMIA [None]
  - WEIGHT DECREASED [None]
  - DECREASED APPETITE [None]
  - CARDIOMYOPATHY [None]
  - HYPERLIPIDAEMIA [None]
  - VERTIGO [None]
  - DYSPNOEA [None]
